FAERS Safety Report 9191638 (Version 1)
Quarter: 2013Q1

REPORT INFORMATION
  Report Type: Report from Study
  Country: US (occurrence: US)
  Receive Date: 20130326
  Receipt Date: 20130326
  Transmission Date: 20140127
  Serious: Yes (Hospitalization)
  Sender: FDA-Public Use
  Company Number: US-ACTELION-A-US2013-80983

PATIENT
  Age: 66 Year
  Sex: Female

DRUGS (13)
  1. TRACLEER [Suspect]
     Indication: PULMONARY ARTERIAL HYPERTENSION
     Dosage: 125
     Route: 048
     Dates: start: 2012
  2. ASPIRIN [Concomitant]
  3. ASACOL [Concomitant]
  4. GLUCOPHAGE [Concomitant]
  5. PRAVACHOL [Concomitant]
  6. LEVOTHYROXINE [Concomitant]
  7. REQUIP [Concomitant]
  8. OMEPRAZOLE [Concomitant]
  9. FISH OIL [Concomitant]
  10. MULTI VITAMIN AND MINERAL + SELENIUM [Concomitant]
  11. ESTRATEST [Concomitant]
  12. DIOVAN [Concomitant]
  13. FEXOFENADINE [Concomitant]

REACTIONS (2)
  - Mineral supplementation [Recovered/Resolved]
  - Blood count abnormal [Recovered/Resolved]
